FAERS Safety Report 19323084 (Version 6)
Quarter: 2023Q4

REPORT INFORMATION
  Report Type: Spontaneous
  Country: US (occurrence: US)
  Receive Date: 20210528
  Receipt Date: 20231026
  Transmission Date: 20240110
  Serious: Yes (Other)
  Sender: FDA-Public Use
  Company Number: US-SA-SAC20210525001423

PATIENT
  Age: 10 Year
  Sex: Male
  Weight: 63.492 kg

DRUGS (26)
  1. LUMIZYME [Suspect]
     Active Substance: ALGLUCOSIDASE ALFA
     Indication: Glycogen storage disease type II
     Dosage: 1200 MG, QOW
     Route: 042
     Dates: start: 20210122
  2. LUMIZYME [Suspect]
     Active Substance: ALGLUCOSIDASE ALFA
     Indication: Mucopolysaccharidosis
     Dosage: 17.65 MG/KG, QOW
     Route: 042
     Dates: start: 2021
  3. LUMIZYME [Suspect]
     Active Substance: ALGLUCOSIDASE ALFA
     Dosage: 1700 MG, QOW
     Route: 042
     Dates: start: 20230714
  4. ACETAMINOPHEN [Concomitant]
     Active Substance: ACETAMINOPHEN
  5. DIPHENHYDRAMINE [Concomitant]
     Active Substance: DIPHENHYDRAMINE
  6. DIPHENHYDRAMINE [Concomitant]
     Active Substance: DIPHENHYDRAMINE
  7. HEPARIN [Concomitant]
     Active Substance: HEPARIN SODIUM
  8. LIDOCAINE\PRILOCAINE [Concomitant]
     Active Substance: LIDOCAINE\PRILOCAINE
  9. STERILE WATER [Concomitant]
     Active Substance: WATER
  10. EPINEPHRINE [Concomitant]
     Active Substance: EPINEPHRINE
  11. GABAPENTIN [Concomitant]
     Active Substance: GABAPENTIN
  12. BACLOFEN [Concomitant]
     Active Substance: BACLOFEN
  13. MAGNESIUM [Concomitant]
     Active Substance: MAGNESIUM
  14. POTASSIUM [Concomitant]
     Active Substance: POTASSIUM
  15. DEXMETHYLPHENIDATE [Concomitant]
     Active Substance: DEXMETHYLPHENIDATE
  16. DEXMETHYLPHENIDATE [Concomitant]
     Active Substance: DEXMETHYLPHENIDATE
  17. CLONIDINE [Concomitant]
     Active Substance: CLONIDINE
  18. RISPERIDONE [Concomitant]
     Active Substance: RISPERIDONE
  19. SODIUM CHLORIDE [Concomitant]
     Active Substance: SODIUM CHLORIDE
  20. DEXMETHYLPHENIDATE HYDROCHLORIDE [Concomitant]
     Active Substance: DEXMETHYLPHENIDATE HYDROCHLORIDE
  21. TOPAMAX [Concomitant]
     Active Substance: TOPIRAMATE
     Dosage: UNK
  22. CLONIDINE HYDROCHLORIDE [Concomitant]
     Active Substance: CLONIDINE HYDROCHLORIDE
     Dosage: UNK
  23. CATHFLO ACTIVASE [Concomitant]
     Active Substance: ALTEPLASE
     Dosage: UNK
  24. AMITRIPTYLINE HYDROCHLORIDE [Concomitant]
     Active Substance: AMITRIPTYLINE HYDROCHLORIDE
     Dosage: UNK
  25. SODIUM CHLORIDE [Concomitant]
     Active Substance: SODIUM CHLORIDE
     Dosage: UNK
  26. DIPHENHYDRAMINE HYDROCHLORIDE [Concomitant]
     Active Substance: DIPHENHYDRAMINE HYDROCHLORIDE
     Dosage: UNK

REACTIONS (8)
  - Thrombosis [Unknown]
  - Dry skin [Unknown]
  - Pruritus [Unknown]
  - Swelling [Unknown]
  - General anaesthesia [Unknown]
  - Hypersensitivity [Unknown]
  - Central venous catheterisation [Unknown]
  - Product preparation issue [Unknown]

NARRATIVE: CASE EVENT DATE: 20210423
